FAERS Safety Report 9014585 (Version 1)
Quarter: 2013Q1

REPORT INFORMATION
  Report Type: Spontaneous
  Country: US (occurrence: US)
  Receive Date: 20130115
  Receipt Date: 20130115
  Transmission Date: 20140127
  Serious: No
  Sender: FDA-Public Use
  Company Number: US-NOVEN-12US005684

PATIENT
  Sex: Female
  Weight: 39.46 kg

DRUGS (1)
  1. FENTANYL [Suspect]
     Indication: PAIN
     Dosage: 50 UG/HR, EVERY 72 HRS
     Route: 062
     Dates: start: 201210

REACTIONS (2)
  - Inadequate analgesia [Not Recovered/Not Resolved]
  - Product quality issue [Not Recovered/Not Resolved]
